FAERS Safety Report 20867377 (Version 1)
Quarter: 2022Q2

REPORT INFORMATION
  Report Type: Spontaneous
  Country: US (occurrence: None)
  Receive Date: 20220523
  Receipt Date: 20220523
  Transmission Date: 20220721
  Serious: Yes (Hospitalization)
  Sender: FDA-Public Use
  Company Number: None

PATIENT
  Age: 52 Year
  Sex: Female
  Weight: 113 kg

DRUGS (1)
  1. ENTYVIO [Suspect]
     Active Substance: VEDOLIZUMAB
     Indication: Colitis ulcerative
     Dosage: OTHER FREQUENCY : INITIATION 0,2,6;?
     Route: 041

REACTIONS (7)
  - Infusion related reaction [None]
  - Dyspnoea [None]
  - Hypoaesthesia [None]
  - Paraesthesia [None]
  - Flushing [None]
  - Vulvovaginal burning sensation [None]
  - Vulvovaginal discomfort [None]

NARRATIVE: CASE EVENT DATE: 20220510
